FAERS Safety Report 7653446-2 (Version None)
Quarter: 2011Q3

REPORT INFORMATION
  Report Type: 
  Country: None (occurrence: None)
  Receive Date: 20110803
  Receipt Date: 20110801
  Transmission Date: 20111222
  Serious: Yes (Other)
  Sender: FDA-Public Use
  Company Number: US-PFIZER INC-2011174831

PATIENT
  Sex: Female
  Weight: 56.689 kg

DRUGS (1)
  1. TOVIAZ [Suspect]
     Indication: HYPERTONIC BLADDER
     Dosage: 8 MG, DAILY
     Route: 048
     Dates: start: 20091201

REACTIONS (3)
  - VISION BLURRED [None]
  - HEART RATE INCREASED [None]
  - DRY EYE [None]
